FAERS Safety Report 7457060-3 (Version None)
Quarter: 2011Q2

REPORT INFORMATION
  Report Type: 
  Country: None (occurrence: None)
  Receive Date: 20110426
  Receipt Date: 20110412
  Transmission Date: 20111010
  Serious: Yes (Hospitalization, Other)
  Sender: FDA-Public Use
  Company Number: US-1185865

PATIENT
  Age: 10 Year
  Sex: Male

DRUGS (1)
  1. MOXEZA [Suspect]
     Indication: CONJUNCTIVITIS INFECTIVE
     Dosage: OPHTHALMIC
     Route: 047
     Dates: start: 20110326, end: 20110326

REACTIONS (1)
  - WHEEZING [None]
